FAERS Safety Report 9522679 (Version 1)
Quarter: 2013Q3

REPORT INFORMATION
  Report Type: Spontaneous
  Country: CN (occurrence: CN)
  Receive Date: 20130913
  Receipt Date: 20130913
  Transmission Date: 20140515
  Serious: Yes (Other)
  Sender: FDA-Public Use
  Company Number: CN-ROCHE-1272821

PATIENT
  Sex: Female
  Weight: 49 kg

DRUGS (4)
  1. RITUXIMAB [Suspect]
     Indication: BURKITT^S LYMPHOMA
     Route: 042
     Dates: start: 20120522, end: 20120523
  2. CYCLOPHOSPHAMIDE [Suspect]
     Indication: BURKITT^S LYMPHOMA
     Route: 042
     Dates: start: 20120524, end: 20120526
  3. METHOTREXATE [Suspect]
     Indication: BURKITT^S LYMPHOMA
     Route: 042
     Dates: start: 20120523, end: 20120524
  4. CYTOSINE ARABINOSIDE [Suspect]
     Indication: BURKITT^S LYMPHOMA
     Route: 042
     Dates: start: 20120523, end: 20120523

REACTIONS (3)
  - Bone marrow failure [Recovered/Resolved with Sequelae]
  - Vomiting [Recovered/Resolved with Sequelae]
  - Dizziness [Recovered/Resolved with Sequelae]
